FAERS Safety Report 13465211 (Version 1)
Quarter: 2017Q2

REPORT INFORMATION
  Report Type: Spontaneous
  Country: IT (occurrence: IT)
  Receive Date: 20170421
  Receipt Date: 20170421
  Transmission Date: 20170830
  Serious: Yes (Other)
  Sender: FDA-Public Use
  Company Number: IT-ROCHE-1921292

PATIENT
  Age: 67 Year
  Sex: Male
  Weight: 80 kg

DRUGS (2)
  1. COTELLIC [Interacting]
     Active Substance: COBIMETINIB
     Indication: MALIGNANT MELANOMA
     Dosage: 20 MG  63 (3X21) TABLETS
     Route: 048
     Dates: start: 20170304, end: 20170321
  2. ZELBORAF [Suspect]
     Active Substance: VEMURAFENIB
     Indication: MALIGNANT MELANOMA
     Dosage: 240 MG BLISTER PACK (AL/AL)^ 56 TABLETS
     Route: 048
     Dates: start: 20170304, end: 20170321

REACTIONS (3)
  - Hepatotoxicity [Recovered/Resolved]
  - Hyperbilirubinaemia [Recovered/Resolved]
  - Drug interaction [Unknown]

NARRATIVE: CASE EVENT DATE: 20170321
